FAERS Safety Report 4410755-8 (Version None)
Quarter: 2004Q3

REPORT INFORMATION
  Report Type: 
  Country: None (occurrence: None)
  Receive Date: 20040726
  Receipt Date: 20040709
  Transmission Date: 20050211
  Serious: Yes (Other)
  Sender: FDA-Public Use
  Company Number: US-JNJFOC-20040702851

PATIENT
  Age: 67 Year
  Sex: Male
  Weight: 88.905 kg

DRUGS (5)
  1. INFLIXIMAB (INFLIXIMAB, RECOMBINANT) LYOPHILIZED POWDER [Suspect]
     Indication: RHEUMATOID ARTHRITIS
     Dosage: INTRAVENOUS
     Route: 042
     Dates: start: 20000726
  2. METHOTREXATE [Concomitant]
  3. ACETAMINOPHEN [Concomitant]
  4. ULTRAM [Concomitant]
  5. VICODIN [Concomitant]

REACTIONS (1)
  - SKIN CANCER [None]
